FAERS Safety Report 17816513 (Version 2)
Quarter: 2020Q2

REPORT INFORMATION
  Report Type: Spontaneous
  Country: US (occurrence: US)
  Receive Date: 20200522
  Receipt Date: 20200608
  Transmission Date: 20200714
  Serious: No
  Sender: FDA-Public Use
  Company Number: US-PFIZER INC-2017277546

PATIENT
  Age: 59 Year
  Sex: Male
  Weight: 88.45 kg

DRUGS (1)
  1. VIAGRA [Suspect]
     Active Substance: SILDENAFIL CITRATE
     Indication: ERECTILE DYSFUNCTION
     Dosage: 100 MG, AS NEEDED BEFORE SEX
     Route: 048
     Dates: start: 20170601

REACTIONS (2)
  - Drug resistance [Unknown]
  - Drug ineffective [Unknown]
